FAERS Safety Report 17544887 (Version 7)
Quarter: 2020Q2

REPORT INFORMATION
  Report Type: Spontaneous
  Country: US (occurrence: US)
  Receive Date: 20200316
  Receipt Date: 20200514
  Transmission Date: 20200713
  Serious: No
  Sender: FDA-Public Use
  Company Number: US-PFIZER INC-2019130009

PATIENT
  Age: 51 Year
  Sex: Female
  Weight: 81.65 kg

DRUGS (3)
  1. PREMPRO [Suspect]
     Active Substance: ESTROGENS, CONJUGATED\MEDROXYPROGESTERONE ACETATE
     Indication: MENOPAUSE
     Dosage: UNK, ONCE DAILY
     Route: 048
     Dates: start: 2019
  2. PREMPRO [Suspect]
     Active Substance: ESTROGENS, CONJUGATED\MEDROXYPROGESTERONE ACETATE
     Indication: ATROPHY
     Dosage: 1 TABLET, DAILY
  3. PREMPRO [Suspect]
     Active Substance: ESTROGENS, CONJUGATED\MEDROXYPROGESTERONE ACETATE
     Indication: MULTIPLE SCLEROSIS
     Dosage: UNK, ONCE DAILY
     Route: 048
     Dates: start: 2018

REACTIONS (5)
  - Body height increased [Unknown]
  - Product prescribing error [Unknown]
  - Asthenia [Unknown]
  - Feeling of despair [Unknown]
  - Weight increased [Unknown]
